FAERS Safety Report 17939157 (Version 1)
Quarter: 2020Q2

REPORT INFORMATION
  Report Type: Spontaneous
  Country: DE (occurrence: DE)
  Receive Date: 20200625
  Receipt Date: 20200625
  Transmission Date: 20200714
  Serious: Yes (Hospitalization)
  Sender: FDA-Public Use
  Company Number: DE-TEVA-2020-DE-1790620

PATIENT
  Age: 91 Year
  Sex: Female
  Weight: 60 kg

DRUGS (7)
  1. COLCHICIN [Concomitant]
     Active Substance: COLCHICINE
     Dosage: 0.5 MG, TO 31012020
  2. COLECALCIFEROL (VITAMIN D) [Concomitant]
     Dosage: 1000 IU (INTERNATIONAL UNIT) DAILY; 1-0-0-0
  3. PREDNISON [Suspect]
     Active Substance: PREDNISONE
     Dosage: 30 MG, TO 31012020
  4. TORASEMID [Concomitant]
     Active Substance: TORSEMIDE
     Dosage: 20 MILLIGRAM DAILY; 1-0-0-0
  5. EDOXABAN [Concomitant]
     Active Substance: EDOXABAN TOSYLATE
     Dosage: 30 MILLIGRAM DAILY; 1-0-0-0
  6. METAMIZOL [Concomitant]
     Active Substance: METAMIZOLE SODIUM
     Dosage: NEED, DROP
  7. ATENOLOL. [Concomitant]
     Active Substance: ATENOLOL
     Dosage: 1 DOSAGE FORMS DAILY; 25 MG, 0.5-0-0.5-0

REACTIONS (5)
  - Arrhythmia [Unknown]
  - Cough [Unknown]
  - Performance status decreased [Unknown]
  - Pyrexia [Unknown]
  - Asthenia [Unknown]
